FAERS Safety Report 8052647 (Version 8)
Quarter: 2013Q3

REPORT INFORMATION
  Report Type: Spontaneous
  Country: US (occurrence: US)
  Receive Date: 20110725
  Receipt Date: 20130715
  Transmission Date: 20140515
  Serious: Yes (Life-Threatening, Hospitalization, Congenital Anomaly, Other)
  Sender: FDA-Public Use
  Company Number: US-PFIZER INC-2011159464

PATIENT
  Sex: Female
  Weight: 3.7 kg

DRUGS (1)
  1. EFFEXOR XR [Suspect]
     Dosage: 75 MG, 3X/DAY
     Route: 064
     Dates: start: 2005

REACTIONS (33)
  - Maternal exposure timing unspecified [Unknown]
  - Transposition of the great vessels [Unknown]
  - Ventricular septal defect [Not Recovered/Not Resolved]
  - Hypoplastic right heart syndrome [Not Recovered/Not Resolved]
  - Patent ductus arteriosus [Recovered/Resolved]
  - Tricuspid valve incompetence [Not Recovered/Not Resolved]
  - Atrial septal defect [Unknown]
  - Hypoplastic left heart syndrome [Unknown]
  - Pulmonary valve stenosis [Not Recovered/Not Resolved]
  - Pyelocaliectasis [Unknown]
  - Cardiac failure congestive [Unknown]
  - Pulmonary oedema [Recovered/Resolved]
  - Cardiomegaly [Recovering/Resolving]
  - Arterial disorder [Unknown]
  - Tachypnoea [Unknown]
  - Atelectasis neonatal [Recovering/Resolving]
  - Feeding disorder [Recovering/Resolving]
  - Hemiparesis [Unknown]
  - Ebstein^s anomaly [Unknown]
  - Congenital heart valve disorder [Unknown]
  - Aortic valve incompetence [Not Recovered/Not Resolved]
  - Mitral valve incompetence [Not Recovered/Not Resolved]
  - Foot deformity [Unknown]
  - Gastrooesophageal reflux disease [Unknown]
  - Ventricular hypertrophy [Not Recovered/Not Resolved]
  - Pulmonary vascular disorder [Unknown]
  - Aortic dilatation [Not Recovered/Not Resolved]
  - Atrial tachycardia [Unknown]
  - Atrioventricular block second degree [Unknown]
  - Congenital choroid plexus cyst [Unknown]
  - Gross motor delay [Unknown]
  - Developmental delay [Unknown]
  - Hypotonia [Unknown]
